FAERS Safety Report 8155514-8 (Version None)
Quarter: 2012Q1

REPORT INFORMATION
  Report Type: 
  Country: None (occurrence: None)
  Receive Date: 20120222
  Receipt Date: 20120214
  Transmission Date: 20120608
  Serious: Yes (Hospitalization, Other)
  Sender: FDA-Public Use
  Company Number: US-BAYER-200934525NA

PATIENT
  Age: 31 Year
  Sex: Female
  Weight: 132.43 kg

DRUGS (7)
  1. YAZ [Suspect]
     Indication: POLYCYSTIC OVARIES
  2. EXCEDRIN (MIGRAINE) [Concomitant]
     Dosage: UNK UNK, PRN
  3. DOMPERIDONE [Concomitant]
     Dosage: UNK UNK, UNK
  4. ZYRTEC [Concomitant]
     Dosage: 10 MG, UNK
     Route: 048
  5. BISMUTH SUBSALICYLATE [Concomitant]
     Dosage: UNK
     Route: 048
  6. YAZ [Suspect]
     Indication: CONTRACEPTION
     Route: 048
  7. TYLENOL SINUS [Concomitant]
     Dosage: UNK UNK, UNK
     Route: 048

REACTIONS (2)
  - PULMONARY EMBOLISM [None]
  - THROMBOSIS [None]
